FAERS Safety Report 5497694-9 (Version None)
Quarter: 2007Q4

REPORT INFORMATION
  Report Type: 
  Country: None (occurrence: None)
  Receive Date: 20071025
  Receipt Date: 20070208
  Transmission Date: 20080405
  Serious: No
  Sender: FDA-Public Use
  Company Number: A0638899A

PATIENT
  Age: 62 Year
  Sex: Female

DRUGS (7)
  1. ADVAIR DISKUS 100/50 [Suspect]
     Indication: CHRONIC OBSTRUCTIVE PULMONARY DISEASE
     Dosage: 1PUFF TWICE PER DAY
     Route: 055
     Dates: start: 20060421
  2. LISINOPRIL [Concomitant]
  3. COMBIVENT [Concomitant]
  4. CALCIUM SUPPLEMENT [Concomitant]
  5. MULTI-VITAMIN [Concomitant]
  6. GARLIC PILLS [Concomitant]
  7. GLUCOSAMINE [Concomitant]

REACTIONS (2)
  - INCREASED APPETITE [None]
  - WEIGHT INCREASED [None]
